FAERS Safety Report 4448514-2 (Version None)
Quarter: 2004Q3

REPORT INFORMATION
  Report Type: 
  Country: None (occurrence: None)
  Receive Date: 20040729
  Receipt Date: 20031201
  Transmission Date: 20050211
  Serious: Yes (Death)
  Sender: FDA-Public Use
  Company Number: USA-2003-0011754

PATIENT
  Age: 46 Year
  Sex: Male
  Weight: 74.8 kg

DRUGS (7)
  1. MORPHINE SULFATE (SIMILAR TO NDA TO 19-516) (MORPHINE SULFATE) [Suspect]
  2. DIAZEPAM [Suspect]
  3. OXAZEPAM [Suspect]
  4. TEMAZEPAM [Suspect]
  5. METHADONE HCL [Suspect]
  6. PROPOXYPHENE HCL [Suspect]
  7. TRAMADOL HCL [Suspect]

REACTIONS (2)
  - ACCIDENTAL OVERDOSE [None]
  - MULTIPLE DRUG OVERDOSE [None]
